FAERS Safety Report 8582491-8 (Version None)
Quarter: 2012Q3

REPORT INFORMATION
  Report Type: 
  Country: None (occurrence: None)
  Receive Date: 20120809
  Receipt Date: 20120801
  Transmission Date: 20120928
  Serious: Yes (Hospitalization, Other)
  Sender: FDA-Public Use
  Company Number: US-ROCHE-1051840

PATIENT
  Sex: Male
  Weight: 68 kg

DRUGS (33)
  1. ZELBORAF [Suspect]
     Indication: MALIGNANT MELANOMA
     Dosage: LAST DOSE PRIOR TO SAE ON 14/MAR/2012. DOSE INTERRUPTED ON 14/MAR/2012
     Route: 048
     Dates: start: 20120208, end: 20120314
  2. ZELBORAF [Suspect]
     Route: 048
     Dates: start: 20120404
  3. OMEPRAZOLE [Concomitant]
     Route: 048
     Dates: start: 20120208
  4. KEPPRA [Concomitant]
     Indication: PROPHYLAXIS
     Route: 048
     Dates: start: 20120201, end: 20120420
  5. LISPRO INSULIN [Concomitant]
     Dates: start: 20120319, end: 20120322
  6. PHENYTOIN [Concomitant]
     Route: 042
     Dates: start: 20120424, end: 20120510
  7. DEXAMETHASONE [Suspect]
     Indication: METASTASES TO CENTRAL NERVOUS SYSTEM
     Route: 048
     Dates: start: 20120202
  8. DOCUSATE [Concomitant]
     Indication: PROPHYLAXIS
     Route: 048
     Dates: start: 20120319, end: 20120322
  9. DOCUSATE [Concomitant]
     Route: 048
     Dates: start: 20120501, end: 20120510
  10. METOPROLOL TARTRATE [Concomitant]
     Route: 048
     Dates: start: 20120501, end: 20120510
  11. LISINOPRIL [Concomitant]
     Route: 048
     Dates: start: 20100101
  12. FAMOTIDINE [Concomitant]
     Indication: PROPHYLAXIS
     Route: 048
     Dates: start: 20120501, end: 20120510
  13. ROBITUSSIN AC (UNITED STATES) [Concomitant]
     Dosage: TOTAL DAILY DOSE 1 TABLESPOON
     Route: 048
     Dates: start: 20120201
  14. KEPPRA [Concomitant]
     Dosage: CONTINUOUS
     Route: 042
     Dates: start: 20120420, end: 20120424
  15. CARDENE [Concomitant]
     Dosage: 4 MG/HR CONTINUOUS
     Route: 042
     Dates: start: 20120420, end: 20120420
  16. ESOMEPRAZOLE [Concomitant]
     Indication: PROPHYLAXIS
     Route: 048
     Dates: start: 20120420, end: 20120510
  17. DEXTROSE/POTASSIUM CHLORIDE [Concomitant]
     Dosage: 75 ML/HR
     Route: 041
     Dates: start: 20120305, end: 20120310
  18. HYDRALAZINE HCL [Concomitant]
     Route: 048
     Dates: start: 20120501, end: 20120510
  19. ZANTAC [Concomitant]
     Indication: PROPHYLAXIS
     Route: 048
     Dates: start: 20120101
  20. MORPHINE [Concomitant]
     Indication: PAIN
     Route: 042
     Dates: start: 20120510, end: 20120512
  21. NYSTATIN [Concomitant]
     Indication: PROPHYLAXIS
     Route: 048
     Dates: start: 20120501, end: 20120510
  22. LEVOFLOXACIN [Concomitant]
     Dates: start: 20120314, end: 20120319
  23. HEPARIN LOCK-FLUSH [Concomitant]
     Indication: PROPHYLAXIS
     Route: 042
     Dates: start: 20120319
  24. ESMOLOL HCL [Concomitant]
     Dosage: CONTINUOUS
     Route: 042
     Dates: start: 20120420, end: 20120420
  25. PHENYTOIN [Concomitant]
     Indication: PROPHYLAXIS
     Route: 042
     Dates: start: 20120424, end: 20120424
  26. LISINOPRIL [Concomitant]
     Route: 048
     Dates: start: 20120501, end: 20120510
  27. LISPRO INSULIN [Concomitant]
     Dosage: SLIDING SCALE
     Route: 058
     Dates: start: 20120319, end: 20120322
  28. ALTEPLASE [Concomitant]
     Indication: PROPHYLAXIS
     Dosage: SINGLE DOSE
     Route: 042
     Dates: start: 20120424, end: 20120424
  29. ACETAMINOPHEN [Concomitant]
     Dosage: AS REQUIRED
     Route: 048
     Dates: start: 20010101
  30. OMEPRAZOLE [Concomitant]
     Indication: PROPHYLAXIS
     Route: 048
     Dates: start: 20120202, end: 20120207
  31. VICODIN [Concomitant]
     Dosage: TOTAL DAILY DOSE: 500/50MG AS REQUIRED
     Route: 048
     Dates: start: 20120101
  32. KEPPRA [Concomitant]
     Route: 048
     Dates: start: 20120424, end: 20120510
  33. SODIUM CHLORIDE [Concomitant]
     Indication: PROPHYLAXIS
     Dosage: CONTINUOUS
     Route: 042
     Dates: start: 20120420, end: 20120423

REACTIONS (4)
  - HAEMORRHAGE INTRACRANIAL [None]
  - BRAIN OEDEMA [None]
  - HAEMORRHAGE [None]
  - OSTEOMYELITIS [None]
